FAERS Safety Report 15440533 (Version 1)
Quarter: 2018Q3

REPORT INFORMATION
  Report Type: Spontaneous
  Country: US (occurrence: US)
  Receive Date: 20180925
  Receipt Date: 20180925
  Transmission Date: 20181010
  Serious: No
  Sender: FDA-Public Use
  Company Number: None

PATIENT
  Age: 68 Year
  Sex: Female

DRUGS (1)
  1. AFINITOR [Suspect]
     Active Substance: EVEROLIMUS
     Dates: start: 201607

REACTIONS (4)
  - Hypertension [None]
  - Cerebrovascular accident [None]
  - Cardiac disorder [None]
  - Type 2 diabetes mellitus [None]

NARRATIVE: CASE EVENT DATE: 20180901
